FAERS Safety Report 8292582-7 (Version None)
Quarter: 2012Q2

REPORT INFORMATION
  Report Type: 
  Country: None (occurrence: None)
  Receive Date: 20120417
  Receipt Date: 20110829
  Transmission Date: 20120825
  Serious: No
  Sender: FDA-Public Use
  Company Number: US-ASTRAZENECA-2011SE51859

PATIENT
  Sex: Female
  Weight: 46.7 kg

DRUGS (1)
  1. NEXIUM [Suspect]
     Indication: HYPERCHLORHYDRIA
     Route: 048
     Dates: start: 20110812

REACTIONS (3)
  - GASTRIC PH DECREASED [None]
  - EPIGASTRIC DISCOMFORT [None]
  - DRUG INEFFECTIVE [None]
